FAERS Safety Report 11242901 (Version 2)
Quarter: 2015Q3

REPORT INFORMATION
  Report Type: Spontaneous
  Country: IT (occurrence: IT)
  Receive Date: 20150707
  Receipt Date: 20150826
  Transmission Date: 20151125
  Serious: Yes (Hospitalization)
  Sender: FDA-Public Use
  Company Number: IT-ELI_LILLY_AND_COMPANY-IT201506010553

PATIENT
  Age: 76 Year
  Sex: Male

DRUGS (4)
  1. CYMBALTA [Suspect]
     Active Substance: DULOXETINE HYDROCHLORIDE
     Indication: DEPRESSION
     Dosage: 60 MG, QD
     Route: 048
     Dates: start: 20140101, end: 20150522
  2. PRADAXA [Interacting]
     Active Substance: DABIGATRAN ETEXILATE MESYLATE
     Indication: ATRIAL FIBRILLATION
     Dosage: 220 MG, QD
     Route: 048
     Dates: start: 20140228, end: 20150522
  3. DILATREND [Concomitant]
     Active Substance: CARVEDILOL
     Indication: PULMONARY ARTERIAL HYPERTENSION
     Dosage: 25 MG, UNKNOWN
     Route: 048
  4. UROREC [Concomitant]
     Active Substance: SILODOSIN
     Indication: BENIGN PROSTATIC HYPERPLASIA
     Dosage: UNK, UNKNOWN
     Route: 048

REACTIONS (3)
  - Anticoagulation drug level above therapeutic [Recovered/Resolved]
  - Gastritis haemorrhagic [Recovered/Resolved]
  - Drug interaction [Recovered/Resolved]

NARRATIVE: CASE EVENT DATE: 20150522
